FAERS Safety Report 18299355 (Version 2)
Quarter: 2020Q4

REPORT INFORMATION
  Report Type: Spontaneous
  Country: IE (occurrence: IE)
  Receive Date: 20200923
  Receipt Date: 20201007
  Transmission Date: 20210113
  Serious: Yes (Death, Other)
  Sender: FDA-Public Use
  Company Number: IE-IPSEN BIOPHARMACEUTICALS, INC.-2020-17180

PATIENT
  Age: 43 Year
  Sex: Male
  Weight: 50 kg

DRUGS (3)
  1. LEUCOVORIN. [Suspect]
     Active Substance: LEUCOVORIN
     Indication: PANCREATIC CARCINOMA METASTATIC
     Dosage: UNK, SINGLE ADMINISTRATION
     Route: 042
     Dates: start: 20200824, end: 20200824
  2. FLUOROURACIL SODIUM [Suspect]
     Active Substance: FLUOROURACIL SODIUM
     Indication: PANCREATIC CARCINOMA METASTATIC
     Dosage: UNK, SINGLE ADMINISTRATION
     Route: 042
     Dates: start: 20200824, end: 20200824
  3. ONIVYDE [Suspect]
     Active Substance: IRINOTECAN HYDROCHLORIDE
     Indication: PANCREATIC CARCINOMA METASTATIC
     Dosage: 86 MG (56 MG/M2), EVERY 2 WEEKS
     Route: 042
     Dates: start: 20200824, end: 20200915

REACTIONS (2)
  - Neutropenia [Unknown]
  - Disease progression [Fatal]

NARRATIVE: CASE EVENT DATE: 202009
